FAERS Safety Report 8857572 (Version 2)
Quarter: 2015Q3

REPORT INFORMATION
  Report Type: Report from Study
  Country: US (occurrence: US)
  Receive Date: 20121024
  Receipt Date: 20150907
  Transmission Date: 20151125
  Serious: Yes (Death)
  Sender: FDA-Public Use
  Company Number: US-ROCHE-1133499

PATIENT
  Sex: Male

DRUGS (3)
  1. RAPTIVA [Suspect]
     Active Substance: EFALIZUMAB
     Indication: PUSTULAR PSORIASIS
     Route: 058
  2. PUVA [Concomitant]
     Active Substance: PSORALEN
  3. RAPTIVA [Suspect]
     Active Substance: EFALIZUMAB
     Indication: PSORIASIS
     Route: 058
     Dates: start: 20050501

REACTIONS (3)
  - Skin plaque [Unknown]
  - Malaise [Recovered/Resolved]
  - Cardiac failure congestive [Fatal]
